FAERS Safety Report 6677595-0 (Version None)
Quarter: 2010Q2

REPORT INFORMATION
  Report Type: 
  Country: None (occurrence: None)
  Receive Date: 20100412
  Receipt Date: 20100218
  Transmission Date: 20101027
  Serious: No
  Sender: FDA-Public Use
  Company Number: US-ALEXION-A201000197

PATIENT
  Sex: Male

DRUGS (2)
  1. SOLIRIS [Suspect]
     Indication: PAROXYSMAL NOCTURNAL HAEMOGLOBINURIA
     Dosage: 600 MG, QW
     Route: 042
     Dates: start: 20090508, end: 20090515
  2. SOLIRIS [Suspect]
     Dosage: 900 MG,
     Route: 042
     Dates: start: 20090605

REACTIONS (3)
  - BACK PAIN [None]
  - FATIGUE [None]
  - PAIN [None]
